FAERS Safety Report 8248162-2 (Version None)
Quarter: 2012Q1

REPORT INFORMATION
  Report Type: 
  Country: None (occurrence: None)
  Receive Date: 20120330
  Receipt Date: 20120320
  Transmission Date: 20120608
  Serious: Yes (Other)
  Sender: FDA-Public Use
  Company Number: GR-GENZYME-CART-1000081

PATIENT

DRUGS (1)
  1. CARTICEL [Suspect]
     Indication: CARTILAGE INJURY
     Dosage: UNK, ONCE
     Route: 014

REACTIONS (5)
  - JOINT SWELLING [None]
  - CHONDROMATOSIS [None]
  - GRAFT COMPLICATION [None]
  - TREATMENT FAILURE [None]
  - LOOSE BODY IN JOINT [None]
